FAERS Safety Report 7635261-9 (Version None)
Quarter: 2011Q3

REPORT INFORMATION
  Report Type: 
  Country: None (occurrence: None)
  Receive Date: 20110726
  Receipt Date: 20110712
  Transmission Date: 20111222
  Serious: Yes (Hospitalization, Other)
  Sender: FDA-Public Use
  Company Number: ES-RANBAXY-2011RR-46260

PATIENT
  Age: 53 Day
  Sex: Female

DRUGS (1)
  1. ACETAMINOPHEN [Suspect]
     Route: 063

REACTIONS (2)
  - RESPIRATORY SYNCYTIAL VIRUS BRONCHIOLITIS [None]
  - EXPOSURE DURING BREAST FEEDING [None]
